FAERS Safety Report 19083631 (Version 3)
Quarter: 2021Q2

REPORT INFORMATION
  Report Type: Spontaneous
  Country: US (occurrence: US)
  Receive Date: 20210401
  Receipt Date: 20210615
  Transmission Date: 20210717
  Serious: No
  Sender: FDA-Public Use
  Company Number: US-SA-2021SA109251

PATIENT
  Sex: Female

DRUGS (1)
  1. DUPIXENT [Suspect]
     Active Substance: DUPILUMAB
     Indication: DERMATITIS ATOPIC
     Dosage: 300 MG, QOW
     Route: 058
     Dates: start: 20210225

REACTIONS (5)
  - Skin exfoliation [Unknown]
  - Skin fissures [Unknown]
  - Skin haemorrhage [Unknown]
  - Gait disturbance [Unknown]
  - Erythema [Unknown]

NARRATIVE: CASE EVENT DATE: 2021
